FAERS Safety Report 9591828 (Version 1)
Quarter: 2013Q4

REPORT INFORMATION
  Report Type: Spontaneous
  Country: US (occurrence: US)
  Receive Date: 20131004
  Receipt Date: 20131004
  Transmission Date: 20140711
  Serious: No
  Sender: FDA-Public Use
  Company Number: US-AMGEN-USASP2012083102

PATIENT
  Age: 53 Year
  Sex: Male

DRUGS (2)
  1. ENBREL [Suspect]
     Indication: PSORIASIS
     Dosage: 50 MG, ONCE A WEEK
     Dates: start: 20120901
  2. METHOTREXATE [Concomitant]
     Dosage: 2.5 MG, 7 TABLETS ONCE A WEEK
     Dates: start: 2009

REACTIONS (1)
  - Oedema peripheral [Not Recovered/Not Resolved]
